FAERS Safety Report 9494080 (Version 1)
Quarter: 2013Q3

REPORT INFORMATION
  Report Type: Spontaneous
  Country: US (occurrence: None)
  Receive Date: 20130829
  Receipt Date: 20130829
  Transmission Date: 20140515
  Serious: Yes (Other)
  Sender: FDA-Public Use
  Company Number: None

PATIENT
  Age: 63 Year
  Sex: Female
  Weight: 74.1 kg

DRUGS (2)
  1. IRINOTECAN [Suspect]
     Indication: PANCREATIC CARCINOMA
     Route: 042
     Dates: start: 20121226
  2. LEUCOVORIN [Suspect]
     Indication: PANCREATIC CARCINOMA
     Route: 042
     Dates: start: 20121226

REACTIONS (5)
  - Abdominal pain [None]
  - Dizziness [None]
  - Flushing [None]
  - Tremor [None]
  - Hypersensitivity [None]
